FAERS Safety Report 6468561-9 (Version None)
Quarter: 2009Q4

REPORT INFORMATION
  Report Type: 
  Country: None (occurrence: None)
  Receive Date: 20091203
  Receipt Date: 20091127
  Transmission Date: 20100525
  Serious: Yes (Hospitalization)
  Sender: FDA-Public Use
  Company Number: HK-WYE-H12412909

PATIENT
  Sex: Male
  Weight: 76 kg

DRUGS (6)
  1. TEMSIROLIMUS [Suspect]
     Indication: RENAL CELL CARCINOMA
     Route: 042
     Dates: start: 20090909
  2. FUSIDIC ACID [Concomitant]
     Indication: SKIN ULCER
     Dosage: CREAM 2% TO RIGHT FOOT
     Route: 061
     Dates: start: 20091124
  3. NIFEDIPINE [Concomitant]
     Indication: HYPERTENSION
     Route: 048
     Dates: start: 20091029
  4. POTASSIUM PERMANGANATE [Concomitant]
     Indication: SKIN ULCER
     Dosage: SOLUTION FOR RIGHT FOOT SOAKING TWICE DAILY
     Route: 050
     Dates: start: 20091124
  5. BEVACIZUMAB [Suspect]
     Indication: RENAL CELL CARCINOMA
     Route: 042
     Dates: start: 20090909
  6. METFORMIN HCL [Concomitant]
     Indication: HYPERGLYCAEMIA
     Route: 048
     Dates: start: 20091124

REACTIONS (1)
  - SKIN ULCER [None]
